FAERS Safety Report 5680871-1 (Version None)
Quarter: 2008Q1

REPORT INFORMATION
  Report Type: 
  Country: None (occurrence: None)
  Receive Date: 20080326
  Receipt Date: 20080314
  Transmission Date: 20080703
  Serious: Yes (Hospitalization)
  Sender: FDA-Public Use
  Company Number: JP-PFIZER INC-2008024918

PATIENT
  Age: 74 Year
  Sex: Female

DRUGS (3)
  1. AZULFIDINE EN-TABS [Suspect]
  2. FAMOTIDINE [Concomitant]
  3. PREDNISOLONE [Concomitant]

REACTIONS (1)
  - NEUTROPHIL COUNT DECREASED [None]
